FAERS Safety Report 14158571 (Version 2)
Quarter: 2017Q4

REPORT INFORMATION
  Report Type: Spontaneous
  Country: IT (occurrence: IT)
  Receive Date: 20171103
  Receipt Date: 20171118
  Transmission Date: 20180321
  Serious: Yes (Death, Hospitalization, Other)
  Sender: FDA-Public Use
  Company Number: IT-BAXTER-2017BAX037216

PATIENT
  Age: 52 Year
  Sex: Male

DRUGS (11)
  1. NEO-LOTAN PLUS [Concomitant]
     Active Substance: HYDROCHLOROTHIAZIDE\LOSARTAN POTASSIUM
     Indication: HYPERTENSION
     Dosage: PERIOD OF THERAPY WAS 1 YEAR
     Route: 048
  2. BACTRIM [Concomitant]
     Active Substance: SULFAMETHOXAZOLE\TRIMETHOPRIM
     Indication: ANTIBIOTIC PROPHYLAXIS
     Route: 048
  3. HALDOL DECANOAS [Concomitant]
     Active Substance: HALOPERIDOL DECANOATE
     Indication: BIPOLAR DISORDER
     Dosage: 50 MG/ML INJECTABLE SOLUTION FOR INTRAMUSCULAR USE, 1 AMPOULE OF 3 ML, PERIOD OF THERAPY WAS 10 YEAR
     Route: 030
  4. LANSOX [Concomitant]
     Active Substance: LANSOPRAZOLE
     Indication: PROPHYLAXIS AGAINST GASTROINTESTINAL ULCER
     Route: 048
  5. ENDOXAN BAXTER [Suspect]
     Active Substance: CYCLOPHOSPHAMIDE
     Indication: B-CELL LYMPHOMA
     Dosage: THREE CYCLES
     Route: 065
     Dates: start: 20170501, end: 20170721
  6. MABTHERA [Suspect]
     Active Substance: RITUXIMAB
     Indication: B-CELL LYMPHOMA
     Dosage: INJECTABLE SOLUTION, THREE CYCLES
     Route: 042
     Dates: start: 20170501, end: 20170721
  7. VYTORIN [Concomitant]
     Active Substance: EZETIMIBE\SIMVASTATIN
     Indication: DYSLIPIDAEMIA
     Dosage: PERIOD OF THERAPY WAS 1 YEAR
     Route: 048
  8. FLUDARABINE [Suspect]
     Active Substance: FLUDARABINE PHOSPHATE
     Indication: B-CELL LYMPHOMA
     Dosage: THREE CYCLES
     Route: 065
     Dates: start: 20170501, end: 20170721
  9. MIRTAZAPINE. [Suspect]
     Active Substance: MIRTAZAPINE
     Indication: PROGRESSIVE MULTIFOCAL LEUKOENCEPHALOPATHY
     Route: 065
  10. MIRTAZAPINE. [Suspect]
     Active Substance: MIRTAZAPINE
     Indication: JC VIRUS TEST POSITIVE
  11. DEPAKIN [Concomitant]
     Active Substance: VALPROATE SODIUM
     Indication: BIPOLAR DISORDER
     Dosage: CHRONO TABLET BLISTER OF 30 TABLETS. PERIOD OF THERAPY WAS 10 YEARS
     Route: 048

REACTIONS (5)
  - JC virus test positive [Fatal]
  - Progressive multifocal leukoencephalopathy [Fatal]
  - Respiratory failure [Unknown]
  - Sepsis [Unknown]
  - Neutropenia [Unknown]

NARRATIVE: CASE EVENT DATE: 201708
